FAERS Safety Report 14355054 (Version 2)
Quarter: 2018Q2

REPORT INFORMATION
  Report Type: Spontaneous
  Country: US (occurrence: US)
  Receive Date: 20180105
  Receipt Date: 20180406
  Transmission Date: 20180711
  Serious: Yes (Death, Hospitalization, Other)
  Sender: FDA-Public Use
  Company Number: US-PFIZER INC-2015384973

PATIENT
  Age: 78 Year
  Sex: Male

DRUGS (23)
  1. CLEOCIN [Concomitant]
     Active Substance: CLINDAMYCIN PHOSPHATE
     Indication: PROPHYLAXIS
     Dosage: 600 MG, AS NEEDED (TAKE 30-60 MINUTES PRIOR TO DENTAL PROCEDURES)
     Route: 048
     Dates: start: 20160408
  2. PRILOSEC [Concomitant]
     Active Substance: OMEPRAZOLE MAGNESIUM
     Dosage: 20 MG, 2X/DAY (1 CAPSULE BY MOUTH 2 TIMES DAILY BEFORE MEALS)
     Route: 048
     Dates: start: 20160723
  3. CALCIUM CARBONATE AND VITAMIN D [Concomitant]
     Active Substance: CALCIUM CARBONATE\VITAMIN D
     Dosage: 2 DF, DAILY
     Route: 048
  4. LANOXIN [Concomitant]
     Active Substance: DIGOXIN
     Dosage: 125 ?G, DAILY
     Route: 048
  5. INSPRA [Concomitant]
     Active Substance: EPLERENONE
     Dosage: 25 MG, DAILY
     Route: 048
  6. REVATIO [Suspect]
     Active Substance: SILDENAFIL CITRATE
     Indication: VENTRICULAR ASSIST DEVICE INSERTION
     Dosage: 0.5 DF, 3X/DAY
     Route: 048
     Dates: start: 20161012
  7. REVATIO [Suspect]
     Active Substance: SILDENAFIL CITRATE
     Indication: CARDIAC FAILURE
     Dosage: 0.5 DF, 3X/DAY  (ONE-HALF OF A PILL, THREE TIMES A DAY)
     Dates: start: 20120529
  8. ECOTRIN [Concomitant]
     Active Substance: ASPIRIN
     Dosage: 81 MG, DAILY (1 TABLET DAILY)
  9. FERROUS SULFATE. [Concomitant]
     Active Substance: FERROUS SULFATE
     Dosage: 325 MG, DAILY (1 TABLET BY MOUTH ONCE DAILY WITH A MEAL)
     Route: 048
  10. PROSCAR [Concomitant]
     Active Substance: FINASTERIDE
     Dosage: 5 MG, DAILY (1 TABLET BY MOUTH EVERY MORNING)
     Route: 048
     Dates: start: 20170920
  11. ALTACE [Concomitant]
     Active Substance: RAMIPRIL
     Dosage: 2.5 MG IN THE AM AND 5MG IN THE PM, 2X/DAY
  12. ZOCOR [Concomitant]
     Active Substance: SIMVASTATIN
     Dosage: 20 MG, 1X/DAY (TAKE 1 TABLET BY MOUTH AT BEDTIME)
     Route: 048
     Dates: start: 20171121
  13. TYLENOL [Concomitant]
     Active Substance: ACETAMINOPHEN
     Dosage: 650 MG, AS NEEDED (TAKE 2 TABLETS BY MOUTH EVERY 4 HOURS)
     Route: 048
     Dates: start: 20160627
  14. REVATIO [Suspect]
     Active Substance: SILDENAFIL CITRATE
     Indication: RIGHT VENTRICULAR FAILURE
     Dosage: 20 MG, 3X/DAY (1 TABLET BY MOUTH 3 TIMES DAILY)
     Route: 048
  15. FERROUS SULFATE. [Concomitant]
     Active Substance: FERROUS SULFATE
     Dosage: 65 MG, 1X/DAY (1 TABLET BY MOUTH ONCE DAILY WITH A MEAL)
     Route: 048
     Dates: start: 20160519
  16. COUMADIN [Concomitant]
     Active Substance: WARFARIN SODIUM
     Dosage: 3.5 MG, DAILY
  17. CORDARONE [Concomitant]
     Active Substance: AMIODARONE HYDROCHLORIDE
     Dosage: 200 MG, 1X/DAY
     Route: 048
     Dates: start: 20171210
  18. TOPROL XL [Concomitant]
     Active Substance: METOPROLOL SUCCINATE
     Dosage: 50 MG, 2X/DAY
     Route: 048
  19. CALCIUM 500+D [Concomitant]
     Active Substance: CALCIUM\VITAMIN D
     Dosage: 500 MG, 1X/DAY(WITH A MEAL)
     Route: 048
     Dates: start: 20170109
  20. DEMADEX [Concomitant]
     Active Substance: TORSEMIDE
     Dosage: 80 MG, DAILY (TAKE 4 TABLETS BY MOUTH TWICE DAILY)
     Route: 048
     Dates: start: 20171209
  21. DEMADEX [Concomitant]
     Active Substance: TORSEMIDE
     Dosage: 20MG/DAY UNTIL 4-5LBS WEIGHT LOSS , AS NEEDED IF 2LB WEIGHT GAIN IN A DAY/4LB WEIGHT GAIN IN A WEEK
  22. DIGOXIN. [Concomitant]
     Active Substance: DIGOXIN
     Dosage: 62.5 UG, 1X/DAY
     Route: 048
     Dates: start: 20171128
  23. KLOR-CON M20 [Concomitant]
     Active Substance: POTASSIUM CHLORIDE
     Dosage: 60 MEQ, DAILY (TAKE 3 TABLETS BY MOUTH 2 TIMES DAILY WITH MEALS)
     Route: 048
     Dates: start: 20171209

REACTIONS (11)
  - Disease recurrence [Recovering/Resolving]
  - Haemorrhagic anaemia [Unknown]
  - Cor pulmonale acute [Unknown]
  - Cor pulmonale chronic [Unknown]
  - Delirium [Unknown]
  - Respiratory failure [Unknown]
  - Haematoma [Unknown]
  - Condition aggravated [Fatal]
  - Product use in unapproved indication [Unknown]
  - Acute kidney injury [Recovering/Resolving]
  - Cardiac failure acute [Fatal]

NARRATIVE: CASE EVENT DATE: 20120529
